FAERS Safety Report 9193921 (Version 3)
Quarter: 2014Q4

REPORT INFORMATION
  Report Type: Report from Study
  Country: JP (occurrence: JP)
  Receive Date: 20130327
  Receipt Date: 20141229
  Transmission Date: 20150529
  Serious: Yes (Other)
  Sender: FDA-Public Use
  Company Number: JP-ROCHE-1206236

PATIENT

DRUGS (5)
  1. OXALIPLATIN. [Suspect]
     Active Substance: OXALIPLATIN
     Indication: COLORECTAL CANCER
     Route: 065
  2. FLUOROURACIL. [Suspect]
     Active Substance: FLUOROURACIL
     Dosage: 46-HOURS
     Route: 042
  3. FLUOROURACIL. [Suspect]
     Active Substance: FLUOROURACIL
     Indication: COLORECTAL CANCER
     Route: 040
  4. CALCIUM FOLINATE [Suspect]
     Active Substance: LEUCOVORIN CALCIUM
     Indication: COLORECTAL CANCER
     Dosage: DAY 1
     Route: 065
  5. BEVACIZUMAB [Suspect]
     Active Substance: BEVACIZUMAB
     Indication: COLORECTAL CANCER
     Dosage: ADMINISTERED WITHIN 2 WEEKS OF ENROLLMENT
     Route: 065

REACTIONS (13)
  - Aspartate aminotransferase increased [Unknown]
  - Febrile neutropenia [Unknown]
  - Haemorrhage [Unknown]
  - Leukopenia [Unknown]
  - Neutropenia [Unknown]
  - Mucosal inflammation [Unknown]
  - Ileus [Unknown]
  - Hypersensitivity [Unknown]
  - Proteinuria [Unknown]
  - Decreased appetite [Unknown]
  - Diarrhoea [Unknown]
  - Fatigue [Unknown]
  - Blood alkaline phosphatase abnormal [Unknown]
